FAERS Safety Report 7620376-1 (Version None)
Quarter: 2011Q3

REPORT INFORMATION
  Report Type: 
  Country: None (occurrence: None)
  Receive Date: 20110718
  Receipt Date: 20110718
  Transmission Date: 20111222
  Serious: Yes (Other)
  Sender: FDA-Public Use
  Company Number: None

PATIENT
  Age: 81 Year
  Sex: Female
  Weight: 36.287 kg

DRUGS (1)
  1. FORTEO [Suspect]
     Indication: OSTEOPOROSIS
     Dosage: 20MCG/0.08ML
     Route: 058
     Dates: start: 20110711, end: 20110711

REACTIONS (5)
  - BONE PAIN [None]
  - DYSSTASIA [None]
  - NECK PAIN [None]
  - HEADACHE [None]
  - MUSCLE SPASMS [None]
